FAERS Safety Report 5148068-1 (Version None)
Quarter: 2006Q4

REPORT INFORMATION
  Report Type: 
  Country: None (occurrence: None)
  Receive Date: 20061106
  Receipt Date: 20060922
  Transmission Date: 20070319
  Serious: Yes (Other)
  Sender: FDA-Public Use
  Company Number: 2006098728

PATIENT
  Age: 63 Year
  Sex: Male
  Weight: 65 kg

DRUGS (3)
  1. LYRICA [Suspect]
     Indication: POLYNEUROPATHY
     Dosage: ORAL
     Route: 048
     Dates: end: 20060626
  2. RAMIPRIL [Concomitant]
  3. TRAMADOL HCL [Concomitant]

REACTIONS (3)
  - CHROMATOPSIA [None]
  - VISION BLURRED [None]
  - VISUAL FIELD DEFECT [None]
